FAERS Safety Report 8315805-4 (Version None)
Quarter: 2012Q2

REPORT INFORMATION
  Report Type: 
  Country: None (occurrence: None)
  Receive Date: 20120427
  Receipt Date: 20120417
  Transmission Date: 20120825
  Serious: Yes (Hospitalization, Other)
  Sender: FDA-Public Use
  Company Number: US-BRISTOL-MYERS SQUIBB COMPANY-16366015

PATIENT
  Sex: Female

DRUGS (2)
  1. COUMADIN [Suspect]
     Indication: DEEP VEIN THROMBOSIS
     Dosage: 1DF= 5MG 2DAYS, 10MG, THEN 5MG
  2. COUMADIN [Suspect]
     Indication: PULMONARY EMBOLISM
     Dosage: 1DF= 5MG 2DAYS, 10MG, THEN 5MG

REACTIONS (4)
  - INTERNATIONAL NORMALISED RATIO INCREASED [None]
  - DRUG DOSE OMISSION [None]
  - HOSPITALISATION [None]
  - INTERVERTEBRAL DISC PROTRUSION [None]
